FAERS Safety Report 9256759 (Version 3)
Quarter: 2014Q3

REPORT INFORMATION
  Report Type: Spontaneous
  Country: US (occurrence: US)
  Receive Date: 20130426
  Receipt Date: 20140827
  Transmission Date: 20150326
  Serious: Yes (Hospitalization, Disabling)
  Sender: FDA-Public Use
  Company Number: US-ASTRAZENECA-2013SE27591

PATIENT
  Age: 61 Year
  Sex: Female

DRUGS (32)
  1. ZELNORM [Concomitant]
     Active Substance: TEGASEROD MALEATE
     Dates: start: 20060803
  2. METOCLOPRAMIDE. [Concomitant]
     Active Substance: METOCLOPRAMIDE
     Dates: start: 20061003
  3. KRISTALOSE [Concomitant]
     Active Substance: LACTULOSE
     Dates: start: 20090409
  4. AZITHROMYCIN [Concomitant]
     Active Substance: AZITHROMYCIN ANHYDROUS
     Dates: start: 20110407
  5. NEXIUM [Suspect]
     Active Substance: ESOMEPRAZOLE MAGNESIUM
     Indication: GASTROOESOPHAGEAL REFLUX DISEASE
     Route: 048
     Dates: start: 20070218
  6. LASIX [Concomitant]
     Active Substance: FUROSEMIDE
  7. CLOBETASOL [Concomitant]
     Active Substance: CLOBETASOL
  8. CIPROFLOXACIN. [Concomitant]
     Active Substance: CIPROFLOXACIN
  9. POTASSIUM [Concomitant]
     Active Substance: POTASSIUM
  10. OXAPROZIN. [Concomitant]
     Active Substance: OXAPROZIN
     Dates: start: 20090409
  11. LORATIDINE [Concomitant]
     Active Substance: LORATADINE
  12. AMLODIPINE [Concomitant]
     Active Substance: AMLODIPINE BESYLATE
     Dates: start: 20130225
  13. FERROUS SULFATE [Concomitant]
     Active Substance: FERROUS SULFATE\FERROUS SULFATE, DRIED
     Dates: start: 20130523
  14. PREDNISOLONE. [Concomitant]
     Active Substance: PREDNISOLONE
     Dates: start: 20131001
  15. ROLAIDS OTC [Concomitant]
     Dosage: AS NEEDED
     Dates: start: 2012
  16. HYDROCHLOROTHIAZIDE. [Concomitant]
     Active Substance: HYDROCHLOROTHIAZIDE
     Dates: start: 20070218
  17. ZOLPIDEM [Concomitant]
     Active Substance: ZOLPIDEM\ZOLPIDEM TARTRATE
     Dates: start: 20090216
  18. ATORVASTATIN [Concomitant]
     Active Substance: ATORVASTATIN
     Dates: start: 20120629
  19. BUSPIRONE [Concomitant]
     Active Substance: BUSPIRONE HYDROCHLORIDE
     Dates: start: 20121018
  20. ALPRAZOLAM. [Concomitant]
     Active Substance: ALPRAZOLAM
     Dates: start: 20090227
  21. SUCRALFATE. [Concomitant]
     Active Substance: SUCRALFATE
     Dates: start: 20090409
  22. ESTRACE [Concomitant]
     Active Substance: ESTRADIOL
     Dates: start: 20091123
  23. PLAVIX [Concomitant]
     Active Substance: CLOPIDOGREL BISULFATE
     Dates: start: 20090227
  24. CYMBALTA [Concomitant]
     Active Substance: DULOXETINE HYDROCHLORIDE
     Dates: start: 20130328
  25. LIPITOR [Concomitant]
     Active Substance: ATORVASTATIN CALCIUM
     Dates: start: 20090131
  26. LISINOPRIL. [Concomitant]
     Active Substance: LISINOPRIL
     Dates: start: 20090121
  27. NEXIUM [Suspect]
     Active Substance: ESOMEPRAZOLE MAGNESIUM
     Indication: GASTROOESOPHAGEAL REFLUX DISEASE
     Dosage: 40 MG 1-2 TIMES DAILY
     Route: 048
     Dates: start: 2000, end: 2012
  28. MEDICATION BLOOD PRESSURE [Concomitant]
  29. GABAPENTIN. [Concomitant]
     Active Substance: GABAPENTIN
  30. FLUCONAZOLE. [Concomitant]
     Active Substance: FLUCONAZOLE
     Dates: start: 20100413
  31. DEXILANT [Concomitant]
     Active Substance: DEXLANSOPRAZOLE
     Dates: start: 20120331
  32. AMITRIPTYLINE [Concomitant]
     Active Substance: AMITRIPTYLINE
     Dates: start: 20130225

REACTIONS (10)
  - Wrist fracture [Unknown]
  - Clavicle fracture [Unknown]
  - Anaemia [Unknown]
  - Bone disorder [Unknown]
  - Learning disability [Unknown]
  - Fibula fracture [Unknown]
  - Ankle fracture [Unknown]
  - Osteoporosis [Unknown]
  - Upper limb fracture [Unknown]
  - Depression [Unknown]

NARRATIVE: CASE EVENT DATE: 2009
